FAERS Safety Report 6996300-1 (Version None)
Quarter: 2010Q3

REPORT INFORMATION
  Report Type: 
  Country: None (occurrence: None)
  Receive Date: 20100918
  Receipt Date: 20090121
  Transmission Date: 20110219
  Serious: No
  Sender: FDA-Public Use
  Company Number: US-WYE-H07813609

PATIENT
  Sex: Female
  Weight: 61.29 kg

DRUGS (9)
  1. EFFEXOR XR [Suspect]
     Indication: DEPRESSION
     Route: 048
     Dates: start: 20080101
  2. TRAZODONE HCL [Concomitant]
  3. SINEMET [Concomitant]
  4. FLONASE [Concomitant]
  5. FOSAMAX [Concomitant]
  6. PREVACID [Concomitant]
  7. IBUPROFEN [Concomitant]
  8. BUSPAR [Concomitant]
  9. EVISTA [Concomitant]

REACTIONS (1)
  - DRUG SCREEN FALSE POSITIVE [None]
